FAERS Safety Report 19094299 (Version 2)
Quarter: 2021Q2

REPORT INFORMATION
  Report Type: Spontaneous
  Country: US (occurrence: US)
  Receive Date: 20210405
  Receipt Date: 20210407
  Transmission Date: 20210717
  Serious: No
  Sender: FDA-Public Use
  Company Number: US-GLAXOSMITHKLINE-US2021AMR072093

PATIENT
  Sex: Female

DRUGS (2)
  1. BENLYSTA [Suspect]
     Active Substance: BELIMUMAB
     Indication: SYSTEMIC LUPUS ERYTHEMATOSUS
     Dosage: UNK UNK, WE
     Dates: start: 20190209, end: 20190803
  2. BENLYSTA [Suspect]
     Active Substance: BELIMUMAB
     Dosage: UNK
     Dates: start: 20190830

REACTIONS (7)
  - Eye pain [Unknown]
  - Photophobia [Unknown]
  - Headache [Unknown]
  - Adverse drug reaction [Unknown]
  - Exposure during pregnancy [Unknown]
  - Hyperacusis [Unknown]
  - In vitro fertilisation [Unknown]

NARRATIVE: CASE EVENT DATE: 20190716
